FAERS Safety Report 11415749 (Version 2)
Quarter: 2015Q4

REPORT INFORMATION
  Report Type: Spontaneous
  Country: US (occurrence: US)
  Receive Date: 20150825
  Receipt Date: 20151229
  Transmission Date: 20160304
  Serious: Yes (Hospitalization)
  Sender: FDA-Public Use
  Company Number: US-PFIZER INC-2015270161

PATIENT
  Age: 76 Year
  Sex: Male
  Weight: 118 kg

DRUGS (3)
  1. SUTENT [Suspect]
     Active Substance: SUNITINIB MALATE
     Dosage: 50 MG, ONCE A DAY, CYCLIC ( 2 WEEKS ON AND 1 WEEK OFF)
     Route: 048
     Dates: start: 20150108, end: 20151215
  2. SUTENT [Suspect]
     Active Substance: SUNITINIB MALATE
     Indication: NEOPLASM MALIGNANT
     Dosage: UNK, CYCLIC (HE WAS ON 2 WEEKS AND OFF 1 WEEK)
     Route: 048
  3. SUTENT [Suspect]
     Active Substance: SUNITINIB MALATE
     Dosage: 50 MG, ONCE A DAY, CYCLIC ( 2 WEEKS ON AND 1 WEEK OFF)
     Route: 048
     Dates: start: 20150108, end: 20151215

REACTIONS (6)
  - Weight fluctuation [Unknown]
  - Diarrhoea [Recovered/Resolved]
  - Disease progression [Not Recovered/Not Resolved]
  - Kidney infection [Recovered/Resolved]
  - Bacterial infection [Recovered/Resolved]
  - Neoplasm malignant [Not Recovered/Not Resolved]

NARRATIVE: CASE EVENT DATE: 2015
